FAERS Safety Report 9195944 (Version 3)
Quarter: 2017Q2

REPORT INFORMATION
  Report Type: Report from Study
  Country: MX (occurrence: MX)
  Receive Date: 20130328
  Receipt Date: 20170615
  Transmission Date: 20170830
  Serious: Yes (Other)
  Sender: FDA-Public Use
  Company Number: PHHY2013MX027230

PATIENT
  Age: 68 Year
  Sex: Female

DRUGS (8)
  1. BUTILHIOSCINA [Concomitant]
     Indication: PRODUCT USED FOR UNKNOWN INDICATION
     Dosage: 3 DF, QD
     Route: 065
  2. CO-DIOVAN [Suspect]
     Active Substance: HYDROCHLOROTHIAZIDE\VALSARTAN
     Indication: CARDIAC DISORDER
     Dosage: 0.5 DF (HYDROCHLOROTHIAZIDE 12.5 MG, VALSARTAN 160 MG) QD
     Route: 048
     Dates: start: 20121012
  3. ASPIRINE PROTECT [Concomitant]
     Active Substance: ASPIRIN
     Indication: PRODUCT USED FOR UNKNOWN INDICATION
     Dosage: 1 DF, QD
     Route: 065
  4. CO-DIOVAN [Suspect]
     Active Substance: HYDROCHLOROTHIAZIDE\VALSARTAN
     Indication: BRADYCARDIA
  5. HALCION [Concomitant]
     Active Substance: TRIAZOLAM
     Indication: INSOMNIA
     Dosage: 0.5 DF, UNK
     Route: 065
     Dates: start: 201010
  6. CO-DIOVAN [Suspect]
     Active Substance: HYDROCHLOROTHIAZIDE\VALSARTAN
     Indication: HYPERTENSION
     Dosage: 1 DF (HYDROCHLOROTHIAZIDE 12.5 MG, VALSARTAN 160 MG), QD
     Route: 048
     Dates: start: 201010
  7. FLANAX CAPS [Concomitant]
     Active Substance: NAPROXEN
     Indication: PRODUCT USED FOR UNKNOWN INDICATION
     Dosage: 1 DF, QD
     Route: 065
  8. VENALOT DEPOT [Concomitant]
     Indication: CARDIOVASCULAR DISORDER
     Dosage: 2 DF, QD
     Route: 065
     Dates: start: 201010

REACTIONS (12)
  - Heart rate decreased [Recovered/Resolved]
  - Dizziness [Unknown]
  - Somnolence [Unknown]
  - Procedural pain [Unknown]
  - Apnoea [Unknown]
  - Complication associated with device [Recovered/Resolved]
  - Muscle spasms [Recovered/Resolved]
  - Wrong technique in product usage process [Not Recovered/Not Resolved]
  - Pain [Recovered/Resolved]
  - Blood pressure diastolic decreased [Recovering/Resolving]
  - Drug prescribing error [Not Recovered/Not Resolved]
  - Vein discolouration [Not Recovered/Not Resolved]

NARRATIVE: CASE EVENT DATE: 201207
